FAERS Safety Report 5298238-7 (Version None)
Quarter: 2007Q1

REPORT INFORMATION
  Report Type: 
  Country: None (occurrence: None)
  Receive Date: 20070201
  Receipt Date: 20061012
  Transmission Date: 20070707
  Serious: No
  Sender: FDA-Public Use
  Company Number: 2006PV023023

PATIENT
  Age: 54 Year
  Sex: Female
  Weight: 85.7298 kg

DRUGS (6)
  1. BYETTA [Suspect]
     Indication: DIABETES MELLITUS NON-INSULIN-DEPENDENT
     Dosage: SEE IMAGE
     Route: 058
     Dates: start: 20060801, end: 20061009
  2. BYETTA [Suspect]
     Indication: DIABETES MELLITUS NON-INSULIN-DEPENDENT
     Dosage: SEE IMAGE
     Route: 058
     Dates: start: 20061010
  3. HUMULIN 70/30 [Concomitant]
  4. METFORMIN [Concomitant]
  5. AMARYL [Concomitant]
  6. ASPIRIN [Concomitant]

REACTIONS (8)
  - CHEST PAIN [None]
  - COLD SWEAT [None]
  - CONTUSION [None]
  - DIZZINESS [None]
  - DYSPNOEA [None]
  - FEELING ABNORMAL [None]
  - FLUSHING [None]
  - INJECTION SITE PAIN [None]
